FAERS Safety Report 10842564 (Version 1)
Quarter: 2015Q1

REPORT INFORMATION
  Report Type: Report from Study
  Country: US (occurrence: US)
  Receive Date: 20150220
  Receipt Date: 20150220
  Transmission Date: 20150721
  Serious: No
  Sender: FDA-Public Use
  Company Number: US-ABBVIE-14P-163-1274475-00

PATIENT
  Age: 51 Year
  Sex: Male
  Weight: 100.33 kg

DRUGS (2)
  1. HUMIRA [Suspect]
     Active Substance: ADALIMUMAB
     Indication: PSORIASIS
     Dates: start: 201311
  2. LISINOPRIL. [Concomitant]
     Active Substance: LISINOPRIL
     Indication: HYPERTENSION

REACTIONS (2)
  - Sciatica [Recovering/Resolving]
  - Meralgia paraesthetica [Recovering/Resolving]

NARRATIVE: CASE EVENT DATE: 201403
